FAERS Safety Report 14916931 (Version 1)
Quarter: 2018Q2

REPORT INFORMATION
  Report Type: Report from Study
  Country: CA (occurrence: CA)
  Receive Date: 20180520
  Receipt Date: 20180520
  Transmission Date: 20180711
  Serious: Yes (Other)
  Sender: FDA-Public Use
  Company Number: CA-ROCHE-2125446

PATIENT
  Sex: Female

DRUGS (6)
  1. METHOTREXATE. [Concomitant]
     Active Substance: METHOTREXATE
  2. BETADERM (CANADA) [Concomitant]
  3. NAPROXEN. [Concomitant]
     Active Substance: NAPROXEN
  4. ACTEMRA [Suspect]
     Active Substance: TOCILIZUMAB
     Indication: STILL^S DISEASE
     Dosage: MOST RECENT DOSE 19/APR/2018
     Route: 042
     Dates: start: 20160622
  5. TARO-CLOBETASOL [Concomitant]
     Active Substance: CLOBETASOL
  6. FOLIC ACID. [Concomitant]
     Active Substance: FOLIC ACID

REACTIONS (2)
  - Weight increased [Unknown]
  - Psoriasis [Unknown]
